FAERS Safety Report 7288330-X (Version None)
Quarter: 2011Q1

REPORT INFORMATION
  Report Type: 
  Country: None (occurrence: None)
  Receive Date: 20110211
  Receipt Date: 20110201
  Transmission Date: 20110831
  Serious: Yes (Other)
  Sender: FDA-Public Use
  Company Number: US-PFIZER INC-2010048748

PATIENT
  Sex: Female
  Weight: 136 kg

DRUGS (8)
  1. PRILOSEC [Concomitant]
     Dosage: UNK
  2. NEURONTIN [Concomitant]
     Dosage: 600 MG, 4X/DAY
  3. ROZEREM [Concomitant]
     Dosage: UNK
  4. MORPHINE SULFATE [Concomitant]
     Dosage: 60 MG, 3X/DAY
  5. ABILIFY [Concomitant]
     Dosage: 10 MG, UNK
     Dates: end: 20100331
  6. GEODON [Suspect]
     Indication: DEPRESSION
     Dosage: 60 MG, 1X/DAY AT NIGHT
     Dates: start: 20100331
  7. PERCOCET [Concomitant]
     Dosage: ^10^ TWO TO THREE TIMES DAILY
  8. PRISTIQ [Suspect]
     Indication: DEPRESSION
     Dosage: 50 MG, 1X/DAY
     Dates: start: 20090101

REACTIONS (4)
  - DRUG EFFECT DECREASED [None]
  - INSOMNIA [None]
  - MULTIPLE SCLEROSIS [None]
  - DEPRESSION [None]
